FAERS Safety Report 14256028 (Version 3)
Quarter: 2020Q3

REPORT INFORMATION
  Report Type: Spontaneous
  Country: PL (occurrence: PL)
  Receive Date: 20171206
  Receipt Date: 20180711
  Transmission Date: 20201104
  Serious: Yes (Death, Life-Threatening, Other)
  Sender: FDA-Public Use
  Company Number: PL-PFIZER INC-2017512067

PATIENT
  Age: 72 Year
  Sex: Female

DRUGS (16)
  1. IPRATROPIUM [Concomitant]
     Active Substance: IPRATROPIUM
     Indication: OBSTRUCTIVE AIRWAYS DISORDER
     Dosage: UNK
     Route: 055
  2. IPRATROPIUM [Concomitant]
     Active Substance: IPRATROPIUM
     Indication: HYPERCAPNIA
  3. LEVOFLOXACIN. [Concomitant]
     Active Substance: LEVOFLOXACIN
     Indication: INFECTION
     Dosage: 500 MG, 2X/DAY
     Route: 042
  4. BUDESONIDE. [Concomitant]
     Active Substance: BUDESONIDE
     Indication: HYPERCAPNIA
  5. AMIKACIN. [Suspect]
     Active Substance: AMIKACIN
     Dosage: 1250 MG, 1X/DAY
     Route: 042
  6. FLUCONAZOLE. [Concomitant]
     Active Substance: FLUCONAZOLE
     Dosage: 400 MG, 1X/DAY
     Route: 042
  7. MEROPENEM. [Suspect]
     Active Substance: MEROPENEM
     Indication: ENTEROBACTER INFECTION
  8. FENOTEROL [Concomitant]
     Active Substance: FENOTEROL
     Indication: HYPERCAPNIA
  9. BUDESONIDE. [Concomitant]
     Active Substance: BUDESONIDE
     Indication: OBSTRUCTIVE AIRWAYS DISORDER
     Dosage: UNK
     Route: 055
  10. MEROPENEM. [Suspect]
     Active Substance: MEROPENEM
     Indication: BACTERIAL INFECTION
     Dosage: 1 G, 3X/DAY
     Route: 042
  11. COLISTIN [Suspect]
     Active Substance: COLISTIN
     Dosage: 1 MILLION IU, 4X/DAY
     Route: 055
  12. COLISTIN [Suspect]
     Active Substance: COLISTIN
     Dosage: 2 MILLION IU, 4X/DAY
     Route: 042
  13. FENOTEROL [Concomitant]
     Active Substance: FENOTEROL
     Indication: OBSTRUCTIVE AIRWAYS DISORDER
     Dosage: UNK
     Route: 055
  14. GENTAMICIN. [Concomitant]
     Active Substance: GENTAMICIN
     Indication: ENTEROBACTER INFECTION
     Dosage: UNK
  15. GENTAMICIN. [Concomitant]
     Active Substance: GENTAMICIN
     Indication: BACTERIAL INFECTION
  16. CEFTRIAXONE. [Concomitant]
     Active Substance: CEFTRIAXONE
     Indication: INFECTION
     Dosage: 1 G, 3X/DAY
     Route: 042

REACTIONS (1)
  - Drug ineffective [Fatal]
